FAERS Safety Report 23099035 (Version 2)
Quarter: 2023Q4

REPORT INFORMATION
  Report Type: Report from Study
  Country: US (occurrence: None)
  Receive Date: 20231024
  Receipt Date: 20231128
  Transmission Date: 20240110
  Serious: Yes (Other)
  Sender: FDA-Public Use
  Company Number: 2023A235211

PATIENT
  Age: 83 Year
  Sex: Female

DRUGS (1)
  1. BREZTRI [Suspect]
     Active Substance: BUDESONIDE\FORMOTEROL\GLYCOPYRROLATE
     Indication: Asthma
     Dosage: 2 PUFFS (10 AM, 10 PM)
     Route: 055
     Dates: start: 20230106, end: 20230907

REACTIONS (7)
  - Renal cancer [Unknown]
  - Urinary tract disorder [Unknown]
  - Visual impairment [Unknown]
  - Asthma [Unknown]
  - Dysuria [Unknown]
  - Vision blurred [Unknown]
  - Dysphonia [Unknown]
